FAERS Safety Report 22131414 (Version 2)
Quarter: 2023Q1

REPORT INFORMATION
  Report Type: Spontaneous
  Country: JP (occurrence: JP)
  Receive Date: 20230323
  Receipt Date: 20230327
  Transmission Date: 20230417
  Serious: Yes (Death)
  Sender: FDA-Public Use
  Company Number: JP-MSD-2303JPN002373J

PATIENT
  Age: 78 Year
  Sex: Male
  Weight: 54 kg

DRUGS (9)
  1. KEYTRUDA [Suspect]
     Active Substance: PEMBROLIZUMAB
     Indication: Renal cell carcinoma
     Dosage: 200 MILLIGRAM
     Route: 041
     Dates: start: 20220712, end: 20220712
  2. KEYTRUDA [Suspect]
     Active Substance: PEMBROLIZUMAB
     Dosage: 200 MILLIGRAM, Q3W
     Route: 041
     Dates: start: 20220803, end: 20220824
  3. INLYTA [Suspect]
     Active Substance: AXITINIB
     Indication: Renal cell carcinoma
     Dosage: 5 MILLIGRAM, BID
     Route: 048
     Dates: start: 20220707, end: 20220824
  4. INLYTA [Suspect]
     Active Substance: AXITINIB
     Dosage: 3 MILLIGRAM, BID
     Route: 048
     Dates: start: 20221026, end: 20221102
  5. LANSOPRAZOLE [Concomitant]
     Active Substance: LANSOPRAZOLE
     Dosage: UNK
     Route: 048
     Dates: start: 20220608, end: 20220913
  6. DOMPERIDONE [Concomitant]
     Active Substance: DOMPERIDONE
     Dosage: UNK
     Route: 048
     Dates: start: 20220608, end: 20221102
  7. ZINC [Concomitant]
     Active Substance: ZINC
     Dosage: UNK
     Route: 048
     Dates: start: 20220617, end: 20221102
  8. MAGNESIUM OXIDE [Concomitant]
     Active Substance: MAGNESIUM OXIDE
     Dosage: UNK
     Route: 048
     Dates: start: 20220617, end: 20221121
  9. LAFUTIDINE [Concomitant]
     Active Substance: LAFUTIDINE
     Dosage: UNK
     Route: 048
     Dates: start: 20220914, end: 20221102

REACTIONS (2)
  - Tubulointerstitial nephritis [Fatal]
  - Interstitial lung disease [Fatal]

NARRATIVE: CASE EVENT DATE: 20220824
